FAERS Safety Report 11358725 (Version 1)
Quarter: 2015Q3

REPORT INFORMATION
  Report Type: Spontaneous
  Country: CA (occurrence: None)
  Receive Date: 20150806
  Receipt Date: 20150806
  Transmission Date: 20151125
  Serious: Yes (Other)
  Sender: FDA-Public Use
  Company Number: CO-PL-CA-2015-157

PATIENT
  Age: 56 Year
  Sex: Female

DRUGS (11)
  1. METHOTREXATE SODIUM. [Suspect]
     Active Substance: METHOTREXATE SODIUM
     Indication: RHEUMATOID ARTHRITIS
     Route: 058
     Dates: start: 2000
  2. OMEPRAZOLE. [Concomitant]
     Active Substance: OMEPRAZOLE
  3. METHOTREXATE [Concomitant]
     Active Substance: METHOTREXATE
  4. EMBREL (ETANERCEPT) [Concomitant]
  5. FOLIC ACID. [Concomitant]
     Active Substance: FOLIC ACID
  6. ORENCIA [Suspect]
     Active Substance: ABATACEPT
     Indication: RHEUMATOID ARTHRITIS
     Dates: end: 20150423
  7. VITAMIN B COMPLEX (PYRIDOXINE HYDROCHLORIDE, THIAMINE HYDROCHLORIDE, RIBHOFLAVIN, NICOTINAMIDE, CALCIUM PANTOTHENATE) [Concomitant]
  8. TYLENOL EXTRA-STRENGTH (PARACETAMOL) [Concomitant]
  9. PLAQUENIL [Suspect]
     Active Substance: HYDROXYCHLOROQUINE SULFATE
     Indication: RHEUMATOID ARTHRITIS
  10. IBUPROFEN. [Concomitant]
     Active Substance: IBUPROFEN
  11. XIMZIA (CERTOLIZUMAB PEGOL) [Concomitant]

REACTIONS (7)
  - Biliary colic [None]
  - Fatigue [None]
  - Oropharyngeal pain [None]
  - Psoriasis [None]
  - Skin fissures [None]
  - Chapped lips [None]
  - Rheumatoid arthritis [None]
